FAERS Safety Report 5828692-0 (Version None)
Quarter: 2008Q3

REPORT INFORMATION
  Report Type: 
  Country: None (occurrence: None)
  Receive Date: 20080731
  Receipt Date: 20080729
  Transmission Date: 20090109
  Serious: Yes (Hospitalization)
  Sender: FDA-Public Use
  Company Number: US-GILEAD-2008-0017546

PATIENT
  Age: 70 Year
  Sex: Male

DRUGS (1)
  1. LETAIRIS [Suspect]

REACTIONS (1)
  - SEPTIC SHOCK [None]
